FAERS Safety Report 8957455 (Version 1)
Quarter: 2012Q4

REPORT INFORMATION
  Report Type: Spontaneous
  Country: US (occurrence: None)
  Receive Date: 20121205
  Receipt Date: 20121205
  Transmission Date: 20130627
  Serious: Yes (Other)
  Sender: FDA-Public Use
  Company Number: None

PATIENT
  Age: 46 Year
  Sex: Female
  Weight: 113.4 kg

DRUGS (1)
  1. HUMIRA [Suspect]
     Indication: PSORIATIC ARTHRITIS
     Dosage: 1 pre-filled syringe
     Route: 058
     Dates: start: 20120912, end: 20121128

REACTIONS (9)
  - Arthralgia [None]
  - Condition aggravated [None]
  - Pain in extremity [None]
  - Skin disorder [None]
  - Skin exfoliation [None]
  - Dry skin [None]
  - Feeling abnormal [None]
  - Tenderness [None]
  - Gait disturbance [None]
